FAERS Safety Report 4782393-9 (Version None)
Quarter: 2005Q3

REPORT INFORMATION
  Report Type: 
  Country: None (occurrence: None)
  Receive Date: 20050927
  Receipt Date: 20050914
  Transmission Date: 20060218
  Serious: Yes (Hospitalization)
  Sender: FDA-Public Use
  Company Number: WAES 0403USA00433

PATIENT
  Age: 67 Year
  Sex: Male

DRUGS (4)
  1. COZAAR [Suspect]
     Indication: HYPERTENSION
     Dosage: 25 MG/DAILY, PO
     Route: 048
     Dates: start: 20001002
  2. ALDACTONE [Concomitant]
  3. BENZBROMARONE [Concomitant]
  4. SPIRONOLACTONE [Concomitant]

REACTIONS (5)
  - ATRIAL FIBRILLATION [None]
  - ATRIAL FLUTTER [None]
  - CARDIAC PACEMAKER REPLACEMENT [None]
  - FALL [None]
  - SICK SINUS SYNDROME [None]
